FAERS Safety Report 23420157 (Version 2)
Quarter: 2024Q1

REPORT INFORMATION
  Report Type: Spontaneous
  Country: US (occurrence: US)
  Receive Date: 20240119
  Receipt Date: 20240322
  Transmission Date: 20240409
  Serious: Yes (Hospitalization, Other)
  Sender: FDA-Public Use
  Company Number: US-BRISTOL-MYERS SQUIBB COMPANY-2024-009719

PATIENT
  Age: 93 Year
  Sex: Male
  Weight: 70.76 kg

DRUGS (3)
  1. REVLIMID [Suspect]
     Active Substance: LENALIDOMIDE
     Indication: Plasma cell myeloma
     Dosage: DOSE : 10 MG;     FREQ : 10 MG AT NIGHT  -  21 DAYS AND 7 DAYS OFF
     Route: 048
  2. LENALIDOMIDE [Suspect]
     Active Substance: LENALIDOMIDE
     Indication: Plasma cell myeloma
     Dosage: DOSE : 10 MG;     FREQ : 10 MG AT NIGHT  -  21 DAYS AND 7 DAYS OFF
     Route: 048
  3. DEXAMETHASONE [Suspect]
     Active Substance: DEXAMETHASONE
     Indication: Parkinson^s disease

REACTIONS (2)
  - Fatigue [Unknown]
  - Dementia [Unknown]

NARRATIVE: CASE EVENT DATE: 20240303
